FAERS Safety Report 4290363-2 (Version None)
Quarter: 2004Q1

REPORT INFORMATION
  Report Type: 
  Country: None (occurrence: None)
  Receive Date: 20040209
  Receipt Date: 20040122
  Transmission Date: 20041129
  Serious: Yes (Hospitalization)
  Sender: FDA-Public Use
  Company Number: 7330

PATIENT
  Age: 34 Year
  Sex: Female

DRUGS (2)
  1. METHOTREXATE [Suspect]
     Indication: ECTOPIC PREGNANCY
     Dosage: 4 MG/KG PER_CYCLE IM
     Route: 030
  2. FOLINIC ACID [Concomitant]

REACTIONS (4)
  - HISTOLOGY ABNORMAL [None]
  - HYPOVOLAEMIC SHOCK [None]
  - PROCEDURAL COMPLICATION [None]
  - VAGINAL HAEMORRHAGE [None]
